FAERS Safety Report 14547987 (Version 2)
Quarter: 2018Q2

REPORT INFORMATION
  Report Type: Spontaneous
  Country: FR (occurrence: FR)
  Receive Date: 20180219
  Receipt Date: 20180501
  Transmission Date: 20180711
  Serious: Yes (Hospitalization, Other)
  Sender: FDA-Public Use
  Company Number: FR-MYLANLABS-2018M1011155

PATIENT
  Age: 57 Year
  Sex: Male
  Weight: 65 kg

DRUGS (7)
  1. FLUOROURACIL. [Suspect]
     Active Substance: FLUOROURACIL
     Indication: PANCREATIC NEUROENDOCRINE TUMOUR METASTATIC
     Dosage: EVERY 14 DAYS, SIX CYCLESUNK
     Route: 065
     Dates: start: 20170201, end: 20170723
  2. FLUOROURACIL. [Suspect]
     Active Substance: FLUOROURACIL
     Dosage: ONLY 1 CYCLE EVERY 14 DAYS
     Route: 065
  3. INSULIN [Concomitant]
     Active Substance: INSULIN NOS
     Indication: TYPE 2 DIABETES MELLITUS
     Dosage: UNK
     Route: 065
  4. SUNITINIB MALATE. [Suspect]
     Active Substance: SUNITINIB MALATE
     Indication: PANCREATIC NEUROENDOCRINE TUMOUR METASTATIC
     Dosage: 37.5 MG, QD
     Route: 065
     Dates: start: 20151207, end: 20170116
  5. OXALIPLATIN. [Suspect]
     Active Substance: OXALIPLATIN
     Indication: PANCREATIC NEUROENDOCRINE TUMOUR METASTATIC
     Dosage: UNK, CYCLIC EVERY 14 DAYS SIX CYCLES
     Route: 065
     Dates: start: 20170201, end: 20170723
  6. CALCIUM FOLINATE [Suspect]
     Active Substance: LEUCOVORIN CALCIUM
     Dosage: UNK CYCLIC EVERY 14 DAYS SIX CYCLES
     Route: 065
     Dates: start: 20170201, end: 20170723
  7. CALCIUM FOLINATE [Suspect]
     Active Substance: LEUCOVORIN CALCIUM
     Indication: PANCREATIC NEUROENDOCRINE TUMOUR METASTATIC
     Dosage: UNK
     Route: 065

REACTIONS (12)
  - Intestinal obstruction [Unknown]
  - General physical health deterioration [Unknown]
  - Hypoglycaemia [Recovered/Resolved]
  - Paraesthesia [Not Recovered/Not Resolved]
  - Hypercalcaemia [Recovering/Resolving]
  - Vomiting [Recovered/Resolved]
  - Small intestinal obstruction [Recovering/Resolving]
  - Hypokalaemia [Recovered/Resolved]
  - Sepsis [Recovered/Resolved]
  - Diarrhoea [Recovered/Resolved]
  - Abdominal pain [Unknown]
  - Endocarditis [Recovering/Resolving]

NARRATIVE: CASE EVENT DATE: 2016
